FAERS Safety Report 6226345-0 (Version None)
Quarter: 2009Q2

REPORT INFORMATION
  Report Type: 
  Country: None (occurrence: None)
  Receive Date: 20090612
  Receipt Date: 20090608
  Transmission Date: 20091009
  Serious: Yes (Other)
  Sender: FDA-Public Use
  Company Number: JP-JNJFOC-20090603522

PATIENT
  Sex: Male
  Weight: 78 kg

DRUGS (3)
  1. DUROTEP MT [Suspect]
     Indication: CANCER PAIN
  2. OPSO [Concomitant]
     Route: 048
  3. OPSO [Concomitant]
     Indication: CANCER PAIN
     Route: 048

REACTIONS (1)
  - DELIRIUM [None]
